FAERS Safety Report 7853746-7 (Version None)
Quarter: 2011Q4

REPORT INFORMATION
  Report Type: 
  Country: None (occurrence: None)
  Receive Date: 20111026
  Receipt Date: 20111014
  Transmission Date: 20120403
  Serious: Yes (Death, Hospitalization, Other)
  Sender: FDA-Public Use
  Company Number: AT-ACTELION-A-CH2011-55573

PATIENT
  Age: 65 Year
  Sex: Male

DRUGS (2)
  1. OXYGEN [Concomitant]
  2. TRACLEER [Suspect]
     Indication: PULMONARY ARTERIAL HYPERTENSION
     Dosage: 125 MG, BID
     Route: 048
     Dates: end: 20111001

REACTIONS (5)
  - PULMONARY FIBROSIS [None]
  - PULMONARY ARTERIAL HYPERTENSION [None]
  - PALLIATIVE CARE [None]
  - MYOCARDIAL INFARCTION [None]
  - CONCOMITANT DISEASE PROGRESSION [None]
